FAERS Safety Report 18156816 (Version 1)
Quarter: 2020Q3

REPORT INFORMATION
  Report Type: Spontaneous
  Country: US (occurrence: US)
  Receive Date: 20200816
  Receipt Date: 20200816
  Transmission Date: 20201103
  Serious: Yes (Other)
  Sender: FDA-Public Use
  Company Number: None

PATIENT
  Age: 7 Year
  Sex: Female
  Weight: 45.9 kg

DRUGS (2)
  1. PHENOBARBITAL. [Suspect]
     Active Substance: PHENOBARBITAL
     Indication: SEIZURE
     Dosage: ?          QUANTITY:1 TABLET(S);?
     Route: 048
     Dates: start: 20200728, end: 20200816
  2. 70/30 NAVALIN INSULIN [Concomitant]

REACTIONS (5)
  - Blindness [None]
  - Vision blurred [None]
  - Hypoacusis [None]
  - Feeling abnormal [None]
  - Feeling drunk [None]

NARRATIVE: CASE EVENT DATE: 20200812
